FAERS Safety Report 7388593-6 (Version None)
Quarter: 2011Q2

REPORT INFORMATION
  Report Type: 
  Country: None (occurrence: None)
  Receive Date: 20110401
  Receipt Date: 20110321
  Transmission Date: 20111010
  Serious: Yes (Other)
  Sender: FDA-Public Use
  Company Number: GB-JNJFOC-20101104736

PATIENT
  Sex: Male

DRUGS (3)
  1. INFLIXIMAB, RECOMBINANT [Suspect]
     Indication: ANKYLOSING SPONDYLITIS
     Dosage: ^6/52^; 2 HOUR INFUSION
     Route: 042
  2. INFLIXIMAB, RECOMBINANT [Suspect]
     Indication: CROHN'S DISEASE
     Dosage: ^6/52^; 2 HOUR INFUSION
     Route: 042
  3. AZATHIOPRINE [Concomitant]
     Route: 065

REACTIONS (1)
  - ALOPECIA UNIVERSALIS [None]
